FAERS Safety Report 18442617 (Version 10)
Quarter: 2020Q4

REPORT INFORMATION
  Report Type: Spontaneous
  Country: PL (occurrence: PL)
  Receive Date: 20201029
  Receipt Date: 20201229
  Transmission Date: 20210114
  Serious: Yes (Hospitalization, Disabling, Other)
  Sender: FDA-Public Use
  Company Number: NVSC2020PL284542

PATIENT
  Age: 32 Year
  Sex: Female

DRUGS (9)
  1. OMEPRAZOLE. [Suspect]
     Active Substance: OMEPRAZOLE
     Indication: DYSPEPSIA
     Dosage: 40 MG, QD, 1X PER DAY
     Route: 065
  2. SERTRALINE [Interacting]
     Active Substance: SERTRALINE HYDROCHLORIDE
     Dosage: 100 MG, QD (DOSE INCREASED)
     Route: 048
  3. HYDROXYZINE [Interacting]
     Active Substance: HYDROXYZINE HYDROCHLORIDE
     Indication: DEPRESSED MOOD
     Dosage: 75 MG, QD, (25MG, 3X PER DAY)
     Route: 065
  4. ITOPRIDE [Interacting]
     Active Substance: ITOPRIDE
     Indication: DYSPEPSIA
     Dosage: 50 MG, BID,  (2X PER DAY)
     Route: 048
  5. ITOPRIDE [Interacting]
     Active Substance: ITOPRIDE
     Dosage: 50 MG, TID (3X50MG P.O)
     Route: 048
  6. ITOPRIDE [Interacting]
     Active Substance: ITOPRIDE
     Dosage: 50 MG, 1X PER DAY, IN THE MORNING
     Route: 048
  7. SERTRALINE [Interacting]
     Active Substance: SERTRALINE HYDROCHLORIDE
     Indication: DEPRESSION
     Dosage: 50 MG, QD (IN THE MORNING, INCREASED TO 100 MG/DAY)
     Route: 048
  8. HYDROXYZINE [Interacting]
     Active Substance: HYDROXYZINE HYDROCHLORIDE
     Indication: DEPRESSION
  9. HYDROXYZINE [Interacting]
     Active Substance: HYDROXYZINE HYDROCHLORIDE
     Indication: DYSPEPSIA
     Dosage: 25 MG, TID (3X 25 MG)
     Route: 065

REACTIONS (13)
  - Nausea [Recovered/Resolved]
  - Gastric disorder [Recovering/Resolving]
  - Decreased immune responsiveness [Unknown]
  - Paraesthesia [Recovered/Resolved]
  - Depression [Unknown]
  - Somnolence [Recovering/Resolving]
  - Constipation [Recovered/Resolved]
  - Drug interaction [Recovered/Resolved]
  - Hypersomnia [Unknown]
  - Asthenia [Unknown]
  - Therapeutic product effect incomplete [Unknown]
  - Headache [Recovering/Resolving]
  - Dyspepsia [Recovered/Resolved]
